FAERS Safety Report 9522171 (Version 3)
Quarter: 2015Q1

REPORT INFORMATION
  Report Type: Spontaneous
  Country: US (occurrence: US)
  Receive Date: 20130913
  Receipt Date: 20150127
  Transmission Date: 20150721
  Serious: Yes (Hospitalization, Other)
  Sender: FDA-Public Use
  Company Number: US-BAYER-2013-110392

PATIENT
  Age: 23 Year
  Sex: Female
  Weight: 68.27 kg

DRUGS (2)
  1. MIRENA [Suspect]
     Active Substance: LEVONORGESTREL
     Indication: CONTRACEPTION
     Dosage: 20 MCG/24HR, CONT
     Route: 015
     Dates: start: 20070425, end: 20110804
  2. PAXIL [Concomitant]
     Active Substance: PAROXETINE HYDROCHLORIDE

REACTIONS (14)
  - Medical device discomfort [None]
  - Medical device pain [None]
  - Procedural pain [None]
  - Embedded device [None]
  - Device issue [None]
  - Depression [None]
  - Injury [None]
  - Pain [None]
  - Off label use [None]
  - Complication of device removal [None]
  - Emotional distress [None]
  - Device breakage [None]
  - Medical device complication [None]
  - Scar [None]

NARRATIVE: CASE EVENT DATE: 20110322
